FAERS Safety Report 15271135 (Version 1)
Quarter: 2018Q4

REPORT INFORMATION
  Report Type: Spontaneous
  Country: FR (occurrence: FR)
  Receive Date: 20180813
  Receipt Date: 20180813
  Transmission Date: 20190204
  Serious: Yes (Hospitalization, Other)
  Sender: FDA-Public Use
  Company Number: FR-ALSI-201800486

PATIENT
  Age: 54 Year
  Sex: Female
  Weight: 80 kg

DRUGS (8)
  1. NITROUS OXIDE. [Suspect]
     Active Substance: NITROUS OXIDE
     Indication: ANAESTHESIA
     Route: 055
     Dates: start: 20000906, end: 20000906
  2. SUCCINYLCHOLINE IODIDE [Concomitant]
     Active Substance: SUCCINYLCHOLINE IODIDE
     Dates: start: 20000906, end: 20000906
  3. HYPNOVEL (MIDAZOLAM HYDROCHLORIDE) [Suspect]
     Active Substance: MIDAZOLAM HYDROCHLORIDE
     Route: 042
     Dates: start: 20000906, end: 20000906
  4. SUFENTANIL [Concomitant]
     Active Substance: SUFENTANIL
     Dates: start: 20000906, end: 20000906
  5. SEVOFLURANE. [Concomitant]
     Active Substance: SEVOFLURANE
     Dates: start: 20000906, end: 20000906
  6. PROPOFOL. [Concomitant]
     Active Substance: PROPOFOL
     Dates: start: 20000906, end: 20000906
  7. ALCOHOL. [Concomitant]
     Active Substance: ALCOHOL
  8. BETAMETHASONE. [Concomitant]
     Active Substance: BETAMETHASONE
     Dates: start: 20000906, end: 20000906

REACTIONS (4)
  - Hemiplegia [Unknown]
  - Tachycardia [Unknown]
  - Erythema [Unknown]
  - Hypotension [Unknown]
